FAERS Safety Report 14205353 (Version 1)
Quarter: 2017Q4

REPORT INFORMATION
  Report Type: Spontaneous
  Country: US (occurrence: US)
  Receive Date: 20171120
  Receipt Date: 20171120
  Transmission Date: 20180321
  Serious: Yes (Hospitalization)
  Sender: FDA-Public Use
  Company Number: US-UCBSA-2017045819

PATIENT
  Age: 29 Year
  Sex: Male

DRUGS (12)
  1. METHYLPHENIDATE HYDROCHLORIDE. [Suspect]
     Active Substance: METHYLPHENIDATE HYDROCHLORIDE
     Indication: OFF LABEL USE
  2. ESCITALOPRAM [Concomitant]
     Active Substance: ESCITALOPRAM OXALATE
     Indication: POST-TRAUMATIC STRESS DISORDER
     Dosage: 20 MG, ONCE DAILY (QD)
  3. TRAZODONE [Suspect]
     Active Substance: TRAZODONE HYDROCHLORIDE
     Indication: POST-TRAUMATIC STRESS DISORDER
     Dosage: UNK
  4. VALPROIC ACID. [Concomitant]
     Active Substance: VALPROIC ACID
     Indication: POST-TRAUMATIC STRESS DISORDER
     Dosage: UNKNOWN DOSE
  5. BUSPIRONE [Concomitant]
     Active Substance: BUSPIRONE HYDROCHLORIDE
     Indication: POST-TRAUMATIC STRESS DISORDER
  6. PRAZOSIN. [Suspect]
     Active Substance: PRAZOSIN
     Indication: POST-TRAUMATIC STRESS DISORDER
     Dosage: UNK
  7. TRAZODONE [Suspect]
     Active Substance: TRAZODONE HYDROCHLORIDE
     Dosage: 200 MG, ONCE DAILY (QD)
  8. METHYLPHENIDATE HYDROCHLORIDE. [Suspect]
     Active Substance: METHYLPHENIDATE HYDROCHLORIDE
     Indication: POST-TRAUMATIC STRESS DISORDER
     Dosage: 10 MG, ONCE DAILY (QD)
  9. PRAZOSIN. [Suspect]
     Active Substance: PRAZOSIN
     Dosage: 20 MG, ONCE DAILY (QD)
  10. NORTRIPTYLINE [Concomitant]
     Active Substance: NORTRIPTYLINE
     Indication: POST-TRAUMATIC STRESS DISORDER
  11. MODAFINIL. [Concomitant]
     Active Substance: MODAFINIL
     Indication: POST-TRAUMATIC STRESS DISORDER
  12. DULOXETINE. [Concomitant]
     Active Substance: DULOXETINE
     Indication: POST-TRAUMATIC STRESS DISORDER

REACTIONS (2)
  - Off label use [Unknown]
  - Priapism [Recovered/Resolved]
